FAERS Safety Report 19181691 (Version 1)
Quarter: 2021Q2

REPORT INFORMATION
  Report Type: Spontaneous
  Country: CA (occurrence: CA)
  Receive Date: 20210426
  Receipt Date: 20210426
  Transmission Date: 20210717
  Serious: Yes (Other)
  Sender: FDA-Public Use
  Company Number: NVSC2021CA090625

PATIENT
  Age: 55 Year
  Sex: Male

DRUGS (8)
  1. DEPO?MEDROL [Suspect]
     Active Substance: METHYLPREDNISOLONE ACETATE
     Indication: PRODUCT USED FOR UNKNOWN INDICATION
     Dosage: 200 MG (SUSPENSION INTRAARTICULAR)
     Route: 030
  2. GLYCERYL TRINITRATE [Suspect]
     Active Substance: NITROGLYCERIN
     Indication: PRODUCT USED FOR UNKNOWN INDICATION
     Dosage: UNK
     Route: 065
  3. ACETYLSALICYLIC ACID [Suspect]
     Active Substance: ASPIRIN
     Indication: PRODUCT USED FOR UNKNOWN INDICATION
     Dosage: 81 MG, QD
     Route: 065
  4. ERELZI [Suspect]
     Active Substance: ETANERCEPT-SZZS
     Indication: RHEUMATOID ARTHRITIS
     Dosage: 50 MG, QD
     Route: 065
  5. TICAGRELOR. [Suspect]
     Active Substance: TICAGRELOR
     Indication: PRODUCT USED FOR UNKNOWN INDICATION
     Dosage: 80 MG, Q12H
     Route: 048
  6. RAMIPRIL. [Suspect]
     Active Substance: RAMIPRIL
     Indication: PRODUCT USED FOR UNKNOWN INDICATION
     Dosage: 5 MG, QD
     Route: 048
  7. XELJANZ [Concomitant]
     Active Substance: TOFACITINIB CITRATE
     Indication: RHEUMATOID ARTHRITIS
     Dosage: 5 MG, Q12H
     Route: 048
  8. ATORVASTATIN [Suspect]
     Active Substance: ATORVASTATIN
     Indication: PRODUCT USED FOR UNKNOWN INDICATION
     Dosage: 80 MG
     Route: 065

REACTIONS (7)
  - Joint swelling [Unknown]
  - Drug ineffective [Unknown]
  - Arthralgia [Unknown]
  - Rheumatoid arthritis [Unknown]
  - Pain [Unknown]
  - Musculoskeletal stiffness [Unknown]
  - Synovitis [Unknown]
